FAERS Safety Report 11901757 (Version 1)
Quarter: 2016Q1

REPORT INFORMATION
  Report Type: Report from Study
  Country: US (occurrence: US)
  Receive Date: 20160108
  Receipt Date: 20160108
  Transmission Date: 20160526
  Serious: No
  Sender: FDA-Public Use
  Company Number: US-ABBVIE-15P-163-1516688-00

PATIENT
  Age: 61 Year
  Sex: Male

DRUGS (2)
  1. VIEKIRA PAK [Suspect]
     Active Substance: DASABUVIR\OMBITASVIR\PARITAPREVIR\RITONAVIR
     Indication: CHRONIC HEPATITIS C
     Route: 048
     Dates: start: 20150315, end: 20150902
  2. RIBAVIRIN. [Suspect]
     Active Substance: RIBAVIRIN
     Indication: CHRONIC HEPATITIS C
     Route: 048
     Dates: start: 20150315, end: 20150902

REACTIONS (8)
  - Melaena [Unknown]
  - Somnambulism [Unknown]
  - Depression [Unknown]
  - Micturition urgency [Unknown]
  - Diarrhoea [Unknown]
  - Anxiety [Unknown]
  - Back pain [Unknown]
  - Fatigue [Unknown]
